FAERS Safety Report 8819895 (Version 2)
Quarter: 2012Q4

REPORT INFORMATION
  Report Type: 
  Country: US (occurrence: US)
  Receive Date: 20121001
  Receipt Date: 20121221
  Transmission Date: 20130627
  Serious: No
  Sender: FDA-Public Use
  Company Number: US-ASTRAZENECA-2012SE73909

PATIENT
  Age: 75 Year
  Sex: Male
  Weight: 75.8 kg

DRUGS (2)
  1. NEXIUM [Suspect]
     Route: 048
     Dates: start: 20120922, end: 20120924
  2. ASPIRIN [Concomitant]
     Indication: PAIN

REACTIONS (6)
  - Musculoskeletal pain [Unknown]
  - Pain in extremity [Unknown]
  - Back pain [Unknown]
  - Herpes zoster [Unknown]
  - Chest pain [Unknown]
  - Myalgia [Unknown]
